FAERS Safety Report 9943500 (Version 1)
Quarter: 2014Q1

REPORT INFORMATION
  Report Type: Report from Study
  Country: US (occurrence: US)
  Receive Date: 20140303
  Receipt Date: 20140303
  Transmission Date: 20141002
  Serious: No
  Sender: FDA-Public Use
  Company Number: US-ABBVIE-13P-163-1047154-00

PATIENT
  Age: 51 Year
  Sex: Female
  Weight: 72.64 kg

DRUGS (10)
  1. HUMIRA [Suspect]
     Indication: PSORIATIC ARTHROPATHY
     Dates: start: 2008, end: 2010
  2. HUMIRA [Suspect]
     Dates: start: 2010, end: 201202
  3. HUMIRA [Suspect]
     Dates: start: 201204, end: 201210
  4. GLYPIZIDE [Concomitant]
     Indication: DIABETES MELLITUS
  5. DIAZIDE [Concomitant]
     Indication: HYPERTENSION
  6. DIAZIDE [Concomitant]
     Indication: FLUID RETENTION
  7. PROZAC [Concomitant]
     Indication: FIBROMYALGIA
  8. PLAVIX [Concomitant]
     Indication: ARTERIAL OCCLUSIVE DISEASE
  9. FISH OIL [Concomitant]
     Indication: NUTRITIONAL SUPPLEMENTATION
  10. ASPIRIN [Concomitant]
     Indication: CARDIOVASCULAR EVENT PROPHYLAXIS

REACTIONS (2)
  - Psoriasis [Not Recovered/Not Resolved]
  - Arthritis [Not Recovered/Not Resolved]
